FAERS Safety Report 7942522-2 (Version None)
Quarter: 2011Q4

REPORT INFORMATION
  Report Type: 
  Country: None (occurrence: None)
  Receive Date: 20111128
  Receipt Date: 20111117
  Transmission Date: 20120403
  Serious: No
  Sender: FDA-Public Use
  Company Number: JP-GLAXOSMITHKLINE-B0761895A

PATIENT
  Sex: Male

DRUGS (3)
  1. VALTREX [Suspect]
     Indication: HERPES ZOSTER
     Dosage: 1500MG PER DAY
     Route: 048
     Dates: start: 20111029, end: 20111031
  2. VANCOMYCIN HYCHLORIDE [Concomitant]
     Indication: POST PROCEDURAL INFECTION
     Route: 042
     Dates: start: 20111012
  3. UNKNOWN DRUG [Concomitant]
     Indication: PAIN
     Route: 048
     Dates: start: 20111028, end: 20111029

REACTIONS (8)
  - GLOMERULAR FILTRATION RATE DECREASED [None]
  - BLOOD SODIUM DECREASED [None]
  - BIPOLAR I DISORDER [None]
  - BLOOD BILIRUBIN DECREASED [None]
  - BLOOD POTASSIUM INCREASED [None]
  - BLOOD UREA INCREASED [None]
  - BLOOD CREATININE INCREASED [None]
  - BLOOD CHLORIDE DECREASED [None]
